FAERS Safety Report 9984765 (Version 1)
Quarter: 2014Q1

REPORT INFORMATION
  Report Type: Report from Study
  Country: US (occurrence: US)
  Receive Date: 20140307
  Receipt Date: 20140307
  Transmission Date: 20141002
  Serious: No
  Sender: FDA-Public Use
  Company Number: US-ABBVIE-13P-163-1182403-00

PATIENT
  Age: 73 Year
  Sex: Female

DRUGS (5)
  1. HUMIRA [Suspect]
     Indication: RHEUMATOID ARTHRITIS
     Dates: start: 201308
  2. PREDNISONE [Suspect]
     Indication: PRODUCT USED FOR UNKNOWN INDICATION
     Dosage: FOR FOUR DAYS
     Dates: start: 201308
  3. PREDNISONE [Suspect]
     Dosage: FOR THREE DAYS
  4. PREDNISONE [Suspect]
     Dosage: FOR TWO DAYS
  5. PREDNISONE [Suspect]
     Dosage: FOR ONE DAY

REACTIONS (2)
  - Gait disturbance [Not Recovered/Not Resolved]
  - Pain [Not Recovered/Not Resolved]
